FAERS Safety Report 7770872-1 (Version None)
Quarter: 2011Q3

REPORT INFORMATION
  Report Type: 
  Country: None (occurrence: None)
  Receive Date: 20110922
  Receipt Date: 20101230
  Transmission Date: 20111222
  Serious: No
  Sender: FDA-Public Use
  Company Number: US-ASTRAZENECA-2010SE61470

PATIENT
  Sex: Female

DRUGS (2)
  1. SEROQUEL [Suspect]
     Indication: INSOMNIA
     Route: 048
     Dates: start: 20101130
  2. SEROQUEL [Suspect]
     Route: 048

REACTIONS (6)
  - FEELING ABNORMAL [None]
  - DRUG INEFFECTIVE [None]
  - HALLUCINATION, AUDITORY [None]
  - MENTAL DISORDER [None]
  - CHEST DISCOMFORT [None]
  - PALPITATIONS [None]
